FAERS Safety Report 25379562 (Version 4)
Quarter: 2025Q2

REPORT INFORMATION
  Report Type: Report from Study
  Country: MY (occurrence: MY)
  Receive Date: 20250530
  Receipt Date: 20250630
  Transmission Date: 20250716
  Serious: Yes (Hospitalization)
  Sender: MERCK SHARP & DOHME LLC
  Company Number: MY-ASTRAZENECA-202502GLO016268MY

PATIENT
  Age: 53 Year
  Sex: Female
  Weight: 83 kg

DRUGS (15)
  1. PEMBROLIZUMAB [Suspect]
     Active Substance: PEMBROLIZUMAB
     Indication: Chronic obstructive pulmonary disease
     Route: 042
     Dates: start: 20250205, end: 20250417
  2. PEMBROLIZUMAB [Suspect]
     Active Substance: PEMBROLIZUMAB
     Indication: Chronic obstructive pulmonary disease
     Route: 042
     Dates: start: 20250115, end: 20250115
  3. PACLITAXEL [Suspect]
     Active Substance: PACLITAXEL
     Indication: Non-small cell lung cancer
     Route: 042
     Dates: start: 20250123, end: 20250123
  4. PACLITAXEL [Suspect]
     Active Substance: PACLITAXEL
     Indication: Non-small cell lung cancer
     Route: 042
     Dates: start: 20250115, end: 20250115
  5. PACLITAXEL [Suspect]
     Active Substance: PACLITAXEL
     Indication: Non-small cell lung cancer
     Route: 042
     Dates: start: 20250205, end: 20250304
  6. PACLITAXEL [Suspect]
     Active Substance: PACLITAXEL
     Indication: Non-small cell lung cancer
     Route: 042
     Dates: start: 20250131, end: 20250131
  7. PANTOPRAZOLE SODIUM [Concomitant]
     Active Substance: PANTOPRAZOLE SODIUM
     Indication: Antiemetic supportive care
     Route: 048
     Dates: start: 20250115
  8. ACETAMINOPHEN [Concomitant]
     Active Substance: ACETAMINOPHEN
     Indication: Back pain
     Dosage: 1 G, TID
     Route: 048
     Dates: start: 20250121, end: 20250201
  9. ACETAMINOPHEN [Concomitant]
     Active Substance: ACETAMINOPHEN
     Indication: Back pain
     Route: 048
     Dates: start: 20250115, end: 20250201
  10. DEXAMETHASONE [Concomitant]
     Active Substance: DEXAMETHASONE
     Indication: Antiemetic supportive care
     Dosage: 4 MG, BID
     Route: 048
     Dates: start: 20250115
  11. LOMOTIL [Concomitant]
     Active Substance: ATROPINE SULFATE\DIPHENOXYLATE HYDROCHLORIDE
     Indication: Diarrhoea
     Route: 048
     Dates: start: 20250210, end: 20250212
  12. ORAL REHYDRATION SALT [Concomitant]
     Indication: Diarrhoea
     Dosage: UNK, TID
     Route: 048
     Dates: start: 20250210, end: 20250212
  13. MAXOLON [Concomitant]
     Active Substance: METOCLOPRAMIDE HYDROCHLORIDE
     Indication: Antiemetic supportive care
     Dosage: 10 MG, TID
     Route: 048
     Dates: start: 20250115
  14. CARBOPLATIN [Suspect]
     Active Substance: CARBOPLATIN
     Indication: Non-small cell lung cancer
     Route: 042
     Dates: start: 20250123, end: 20250508
  15. CARBOPLATIN [Suspect]
     Active Substance: CARBOPLATIN
     Indication: Non-small cell lung cancer
     Route: 042
     Dates: start: 20250115, end: 20250115

REACTIONS (1)
  - Viral rash [Not Recovered/Not Resolved]

NARRATIVE: CASE EVENT DATE: 20250219
